FAERS Safety Report 20580732 (Version 1)
Quarter: 2022Q1

REPORT INFORMATION
  Report Type: Spontaneous
  Country: CA (occurrence: CA)
  Receive Date: 20220311
  Receipt Date: 20220311
  Transmission Date: 20220423
  Serious: Yes (Other)
  Sender: FDA-Public Use
  Company Number: CA-CELLTRION INC.-2022CA002832

PATIENT

DRUGS (1)
  1. TRUXIMA [Suspect]
     Active Substance: RITUXIMAB-ABBS
     Indication: Immune thrombocytopenia
     Dosage: 3200 MG
     Route: 042

REACTIONS (4)
  - Immune thrombocytopenia [Unknown]
  - Off label use [Unknown]
  - Insurance issue [Unknown]
  - Inability to afford medication [Unknown]
